FAERS Safety Report 12675490 (Version 1)
Quarter: 2016Q3

REPORT INFORMATION
  Report Type: Spontaneous
  Country: AU (occurrence: AU)
  Receive Date: 20160823
  Receipt Date: 20160823
  Transmission Date: 20161109
  Serious: Yes (Hospitalization)
  Sender: FDA-Public Use
  Company Number: AU-ORION CORPORATION ORION PHARMA-ENTC2016-0471

PATIENT
  Sex: Male

DRUGS (3)
  1. LIPOSTATIN/ATORVASTATIN CALCIUM [Concomitant]
     Route: 065
  2. STALEVO [Suspect]
     Active Substance: CARBIDOPA\ENTACAPONE\LEVODOPA
     Dosage: STRENGTH: 100/25/200 MG
     Route: 065
  3. NOTEN [Concomitant]
     Active Substance: ATENOLOL
     Indication: BLOOD PRESSURE ABNORMAL
     Route: 065

REACTIONS (5)
  - Product quality issue [Unknown]
  - Gait disturbance [Unknown]
  - Muscle tightness [Unknown]
  - Pain [Unknown]
  - Asthenia [Unknown]
